FAERS Safety Report 10370543 (Version 1)
Quarter: 2014Q3

REPORT INFORMATION
  Report Type: Spontaneous
  Country: US (occurrence: US)
  Receive Date: 20140808
  Receipt Date: 20140808
  Transmission Date: 20150326
  Serious: Yes (Other)
  Sender: FDA-Public Use
  Company Number: US-JNJFOC-20140803437

PATIENT

DRUGS (5)
  1. VINCRISTINE [Suspect]
     Active Substance: VINCRISTINE
     Indication: RETINOBLASTOMA
     Route: 065
  2. CYCLOPHOSPHAMIDE. [Suspect]
     Active Substance: CYCLOPHOSPHAMIDE
     Indication: RETINOBLASTOMA
     Route: 065
  3. G-CSF [Concomitant]
     Active Substance: FILGRASTIM
     Route: 065
  4. DOXORUBICIN [Suspect]
     Active Substance: DOXORUBICIN
     Indication: RETINOBLASTOMA
     Dosage: FOR AGE {12 MONTHS??45 MG/M2 FOR AGE } 12 MONTHS
     Route: 042
  5. MESNA. [Concomitant]
     Active Substance: MESNA
     Route: 065

REACTIONS (2)
  - Off label use [Unknown]
  - Adenovirus infection [Unknown]
